FAERS Safety Report 10633967 (Version 2)
Quarter: 2014Q4

REPORT INFORMATION
  Report Type: Report from Study
  Country: CA (occurrence: CA)
  Receive Date: 20141205
  Receipt Date: 20141205
  Transmission Date: 20150529
  Serious: Yes (Other)
  Sender: FDA-Public Use
  Company Number: PHHY2014CA090103

PATIENT
  Age: 26 Year
  Sex: Female

DRUGS (1)
  1. EXJADE [Suspect]
     Active Substance: DEFERASIROX
     Indication: SICKLE CELL ANAEMIA
     Dosage: 2500 MG, QD
     Route: 048
     Dates: start: 20140501

REACTIONS (6)
  - Pyrexia [Unknown]
  - Malaise [Unknown]
  - Nasopharyngitis [Unknown]
  - Allergic transfusion reaction [Unknown]
  - Body temperature decreased [Unknown]
  - Dysphagia [Unknown]

NARRATIVE: CASE EVENT DATE: 20141202
